FAERS Safety Report 6894334-9 (Version None)
Quarter: 2010Q3

REPORT INFORMATION
  Report Type: 
  Country: None (occurrence: None)
  Receive Date: 20100708
  Receipt Date: 20090929
  Transmission Date: 20110219
  Serious: Yes (Other)
  Sender: FDA-Public Use
  Company Number: 2009276900

PATIENT
  Age: 22 Year
  Sex: Female
  Weight: 54 kg

DRUGS (3)
  1. CHANTIX [Suspect]
     Indication: SMOKING CESSATION THERAPY
     Dosage: 1MG, 1X/DAY, ORAL; 0.5 MG 1X/DAY, ORAL
     Route: 048
     Dates: start: 20090901
  2. CHANTIX [Suspect]
     Indication: SMOKING CESSATION THERAPY
     Dosage: 1MG, 1X/DAY, ORAL; 0.5 MG 1X/DAY, ORAL
     Route: 048
     Dates: start: 20090918
  3. NITROFURANTION (NITROFURANTAOIN) [Concomitant]

REACTIONS (3)
  - PHARYNGEAL OEDEMA [None]
  - RASH GENERALISED [None]
  - URTICARIA [None]
